FAERS Safety Report 4526731-0 (Version None)
Quarter: 2004Q4

REPORT INFORMATION
  Report Type: 
  Country: None (occurrence: None)
  Receive Date: 20041213
  Receipt Date: 20041129
  Transmission Date: 20050328
  Serious: Yes (Other)
  Sender: FDA-Public Use
  Company Number: HQWYE868109DEC04

PATIENT
  Age: 32 Year
  Sex: Female

DRUGS (1)
  1. CORDARONE [Suspect]
     Dosage: 100 MG 1X PER 1 DAY

REACTIONS (3)
  - BLINDNESS TRANSIENT [None]
  - OPTIC NEUROPATHY [None]
  - THYROID NEOPLASM [None]
